FAERS Safety Report 7808188-7 (Version None)
Quarter: 2011Q4

REPORT INFORMATION
  Report Type: 
  Country: None (occurrence: None)
  Receive Date: 20111011
  Receipt Date: 20111007
  Transmission Date: 20120403
  Serious: Yes (Other)
  Sender: FDA-Public Use
  Company Number: US-ABBOTT-11P-163-0862618-00

PATIENT
  Sex: Male
  Weight: 92.616 kg

DRUGS (8)
  1. ASACOL [Concomitant]
     Indication: PRODUCT USED FOR UNKNOWN INDICATION
  2. MERCAPTOPURINE [Concomitant]
     Indication: PRODUCT USED FOR UNKNOWN INDICATION
     Dates: start: 20110705
  3. LIPITOR [Concomitant]
     Indication: PRODUCT USED FOR UNKNOWN INDICATION
  4. ASPIRIN [Concomitant]
     Indication: PRODUCT USED FOR UNKNOWN INDICATION
  5. GLUCOTROL [Concomitant]
     Indication: PRODUCT USED FOR UNKNOWN INDICATION
  6. PRILOSEC [Concomitant]
     Indication: PRODUCT USED FOR UNKNOWN INDICATION
  7. HUMIRA [Suspect]
     Indication: CROHN'S DISEASE
     Dosage: UNAVAILABLE
     Route: 058
     Dates: start: 20100701, end: 20110901
  8. RAMIPRIL [Concomitant]
     Indication: PRODUCT USED FOR UNKNOWN INDICATION

REACTIONS (1)
  - TUBERCULIN TEST POSITIVE [None]
